FAERS Safety Report 24939314 (Version 1)
Quarter: 2025Q1

REPORT INFORMATION
  Report Type: Report from Study
  Country: US (occurrence: US)
  Receive Date: 20250206
  Receipt Date: 20250206
  Transmission Date: 20250409
  Serious: Yes (Other)
  Sender: JOHNSON AND JOHNSON
  Company Number: US-ABBVIE-6121154

PATIENT
  Sex: Male

DRUGS (1)
  1. IMBRUVICA [Suspect]
     Active Substance: IBRUTINIB
     Indication: Chronic lymphocytic leukaemia
     Route: 048
     Dates: start: 20210111

REACTIONS (4)
  - Iris adhesions [Unknown]
  - Atrial fibrillation [Unknown]
  - Arthritis [Unknown]
  - Musculoskeletal stiffness [Unknown]
